FAERS Safety Report 22155174 (Version 2)
Quarter: 2023Q2

REPORT INFORMATION
  Report Type: Spontaneous
  Country: JP (occurrence: None)
  Receive Date: 20230330
  Receipt Date: 20230407
  Transmission Date: 20230722
  Serious: Yes (Other)
  Sender: FDA-Public Use
  Company Number: 2023A069762

PATIENT

DRUGS (2)
  1. SYMBICORT [Suspect]
     Active Substance: BUDESONIDE\FORMOTEROL FUMARATE DIHYDRATE
     Indication: Asthma
     Dosage: DOSE UNKNOWN UNKNOWN
     Route: 055
  2. BUDEFORU [Concomitant]
     Indication: Asthma
     Dosage: DOSE UNKNOWN

REACTIONS (1)
  - Acute myocardial infarction [Unknown]
